FAERS Safety Report 10787411 (Version 2)
Quarter: 2015Q1

REPORT INFORMATION
  Report Type: Report from Study
  Country: NZ (occurrence: NZ)
  Receive Date: 20150212
  Receipt Date: 20150318
  Transmission Date: 20150721
  Serious: Yes (Death, Other)
  Sender: FDA-Public Use
  Company Number: PHHY2015NZ016200

PATIENT
  Age: 61 Year
  Sex: Female
  Weight: 130 kg

DRUGS (10)
  1. OXYBUTYNIN [Concomitant]
     Active Substance: OXYBUTYNIN
     Indication: BLADDER IRRITATION
     Dosage: 5 MG, 1 TAB AT NIGHT
     Route: 065
     Dates: start: 20141030
  2. SALBUTAMOL [Concomitant]
     Active Substance: ALBUTEROL
     Indication: WHEEZING
     Dosage: 2 DF, PRN
     Route: 065
     Dates: start: 20110602
  3. CHOLECALCIFEROL [Concomitant]
     Active Substance: CHOLECALCIFEROL
     Indication: HYPOVITAMINOSIS
     Dosage: 50000 IU, 1 TAB EACH MONTH
     Route: 065
     Dates: start: 20101201
  4. CLOZARIL [Suspect]
     Active Substance: CLOZAPINE
     Indication: THINKING ABNORMAL
     Dosage: 150 MG, (50X 3 TABS) AT NIGHT
     Route: 048
     Dates: start: 20141120
  5. METFORMIN [Concomitant]
     Active Substance: METFORMIN HYDROCHLORIDE
     Indication: DIABETES MELLITUS
     Dosage: 850 MG, BID
     Route: 065
     Dates: start: 20140626
  6. ARIPIPRAZOLE. [Concomitant]
     Active Substance: ARIPIPRAZOLE
     Indication: THINKING ABNORMAL
     Dosage: 10 MG, 1 TAB EACH MORNING
     Route: 065
     Dates: start: 20141111
  7. PAROXETINE [Concomitant]
     Active Substance: PAROXETINE\PAROXETINE HYDROCHLORIDE
     Indication: DEPRESSION
     Dosage: 20 MG, 1 TAB EACH MORNING
     Route: 065
     Dates: start: 20080416
  8. CLONAZEPAM. [Concomitant]
     Active Substance: CLONAZEPAM
     Indication: SEDATIVE THERAPY
     Dosage: 0.5 MG, BID
     Route: 065
     Dates: start: 20080416
  9. CLOZARIL [Suspect]
     Active Substance: CLOZAPINE
     Indication: SCHIZOPHRENIA
     Dosage: UNK
     Route: 048
     Dates: start: 19950328
  10. SIMVASTATIN. [Concomitant]
     Active Substance: SIMVASTATIN
     Indication: BLOOD CHOLESTEROL INCREASED
     Dosage: 20 MG, (1 TAB AT NIGHT)
     Route: 065
     Dates: start: 20080416

REACTIONS (4)
  - Loss of consciousness [Unknown]
  - Circulatory collapse [Unknown]
  - Product use issue [Unknown]
  - Myocardial infarction [Fatal]

NARRATIVE: CASE EVENT DATE: 20150118
